FAERS Safety Report 6733865-9 (Version None)
Quarter: 2010Q2

REPORT INFORMATION
  Report Type: 
  Country: None (occurrence: None)
  Receive Date: 20100520
  Receipt Date: 20100512
  Transmission Date: 20101027
  Serious: Yes (Hospitalization, Other)
  Sender: FDA-Public Use
  Company Number: US-JNJFOC-20100100435

PATIENT
  Sex: Female
  Weight: 45.81 kg

DRUGS (10)
  1. DURAGESIC-100 [Suspect]
     Indication: NECK PAIN
     Route: 062
  2. DURAGESIC-100 [Suspect]
     Route: 062
  3. DURAGESIC-100 [Suspect]
     Indication: BACK PAIN
     Route: 062
  4. DURAGESIC-100 [Suspect]
     Route: 062
  5. DURAGESIC-100 [Suspect]
     Route: 062
  6. DURAGESIC-100 [Suspect]
     Route: 062
  7. DURAGESIC-100 [Suspect]
     Route: 062
  8. DURAGESIC-100 [Suspect]
     Route: 062
  9. OXYCONTIN [Suspect]
     Indication: BREAKTHROUGH PAIN
     Route: 048
  10. NEXIUM [Concomitant]
     Indication: GASTROOESOPHAGEAL REFLUX DISEASE
     Route: 048

REACTIONS (8)
  - CONVULSION [None]
  - DRUG EFFECT INCREASED [None]
  - HOT FLUSH [None]
  - HYPERHIDROSIS [None]
  - INSOMNIA [None]
  - MUSCLE SPASMS [None]
  - SURGERY [None]
  - THERAPEUTIC RESPONSE DECREASED [None]
